FAERS Safety Report 6818757-9 (Version None)
Quarter: 2010Q2

REPORT INFORMATION
  Report Type: 
  Country: None (occurrence: None)
  Receive Date: 20100630
  Receipt Date: 20100615
  Transmission Date: 20101027
  Serious: Yes (Hospitalization)
  Sender: FDA-Public Use
  Company Number: 1000014636

PATIENT
  Age: 76 Year
  Sex: Male

DRUGS (10)
  1. MILNACIPRAN (MILNACIPRAN HYDROCHLORIDE) (TABLETS) [Suspect]
     Indication: DEPRESSION
     Dosage: 15 MG (15 MG, 1 IN 1 D), ORAL; 30 MG (30 MG, 1 IN 1 D), ORAL
     Route: 048
     Dates: start: 20100512, end: 20100513
  2. MILNACIPRAN (MILNACIPRAN HYDROCHLORIDE) (TABLETS) [Suspect]
     Indication: DEPRESSION
     Dosage: 15 MG (15 MG, 1 IN 1 D), ORAL; 30 MG (30 MG, 1 IN 1 D), ORAL
     Route: 048
     Dates: start: 20100514, end: 20100519
  3. DISTIGMINE BROMIDE [Concomitant]
  4. SODIUM PICOSULFATE [Concomitant]
  5. SILODOSIN [Concomitant]
  6. ETIZOLAM [Concomitant]
  7. ZOLPIDEM TARTRATE [Concomitant]
  8. FAMOTIDINE [Concomitant]
  9. REBAMIPIDE [Concomitant]
  10. PAROXETINE HCL [Concomitant]

REACTIONS (4)
  - BLOOD PRESSURE INCREASED [None]
  - CARDIAC FAILURE CONGESTIVE [None]
  - HEART RATE INCREASED [None]
  - STRESS CARDIOMYOPATHY [None]
